FAERS Safety Report 6198636-3 (Version None)
Quarter: 2009Q2

REPORT INFORMATION
  Report Type: 
  Country: None (occurrence: None)
  Receive Date: 20090519
  Receipt Date: 20090519
  Transmission Date: 20091009
  Serious: No
  Sender: FDA-Public Use
  Company Number: None

PATIENT
  Age: 31 Year
  Sex: Male
  Weight: 90.7194 kg

DRUGS (3)
  1. LAMICTAL [Suspect]
     Dosage: 400 MG BID PO
     Route: 048
     Dates: start: 20090101
  2. LAMICTAL [Suspect]
     Dosage: 400 MG BID PO
     Route: 048
     Dates: start: 20090201
  3. LAMICTAL [Suspect]
     Dosage: 400 MG BID PO
     Route: 048
     Dates: start: 20090301

REACTIONS (8)
  - ANXIETY [None]
  - CONTUSION [None]
  - DROP ATTACKS [None]
  - ECCHYMOSIS [None]
  - GRAND MAL CONVULSION [None]
  - HEAD INJURY [None]
  - INJURY [None]
  - PRODUCT SUBSTITUTION ISSUE [None]
